FAERS Safety Report 7374313-8 (Version None)
Quarter: 2011Q1

REPORT INFORMATION
  Report Type: 
  Country: None (occurrence: None)
  Receive Date: 20110316
  Receipt Date: 20110307
  Transmission Date: 20110831
  Serious: Yes (Other)
  Sender: FDA-Public Use
  Company Number: 2010EU004188

PATIENT
  Age: 60 Year
  Sex: Male
  Weight: 60 kg

DRUGS (16)
  1. AMOXICILLIN CLAVULANIC ACID (AMOXICILLIN TRIHYDRATE, CLAVULANATE POTAS [Concomitant]
  2. PREDNISONE [Concomitant]
  3. METHYLPREDNISOLONE [Concomitant]
  4. URSODIOL [Concomitant]
  5. TACROLIMUS [Concomitant]
  6. PIPERACILLIN W/TAZOBACTAM (PIPERACILLIN, TAZOBACTAM) [Concomitant]
  7. NOREPINEPHRINE BITARTRATE [Concomitant]
  8. ENOXAPARIN SODIUM [Concomitant]
  9. FUROSEMIDE [Concomitant]
  10. INSULANE (INSULIN PORCINE) [Concomitant]
  11. AMBISOME [Suspect]
     Indication: ANTIFUNGAL PROPHYLAXIS
     Dosage: (120 MG, IV NOS) (60 MG, IV NOS)
     Route: 042
     Dates: start: 20100715, end: 20100720
  12. EPINEPHRINE [Concomitant]
  13. TEICOPLANIN (TEICOPLANIN) [Concomitant]
  14. CIPROFLOXACIN [Concomitant]
  15. MEROPENEM [Concomitant]
  16. HYDROCORTONE [Concomitant]

REACTIONS (2)
  - DRUG INEFFECTIVE [None]
  - FUNGAL INFECTION [None]
